FAERS Safety Report 13802020 (Version 1)
Quarter: 2017Q3

REPORT INFORMATION
  Report Type: Spontaneous
  Country: US (occurrence: US)
  Receive Date: 20170727
  Receipt Date: 20170727
  Transmission Date: 20171127
  Serious: Yes (Other)
  Sender: FDA-Public Use
  Company Number: US-BAYER-2017-141565

PATIENT

DRUGS (2)
  1. CIPRO [Suspect]
     Active Substance: CIPROFLOXACIN HYDROCHLORIDE
  2. LEVOFLOXACIN. [Concomitant]
     Active Substance: LEVOFLOXACIN

REACTIONS (1)
  - Neuropathy peripheral [None]
